FAERS Safety Report 19847593 (Version 2)
Quarter: 2021Q4

REPORT INFORMATION
  Report Type: Report from Study
  Country: US (occurrence: US)
  Receive Date: 20210917
  Receipt Date: 20211130
  Transmission Date: 20220303
  Serious: Yes (Hospitalization, Other)
  Sender: FDA-Public Use
  Company Number: US-BAYER-2021-208949

PATIENT
  Age: 47 Year
  Sex: Female

DRUGS (6)
  1. STIVARGA [Suspect]
     Active Substance: REGORAFENIB
     Indication: Colorectal cancer metastatic
     Dosage: DAILY DOSE 160 MG FOR THE FIRST 21 DAYS
     Route: 048
  2. STIVARGA [Suspect]
     Active Substance: REGORAFENIB
     Indication: Colorectal cancer metastatic
  3. LONSURF [Suspect]
     Active Substance: TIPIRACIL HYDROCHLORIDE\TRIFLURIDINE
     Indication: Colorectal cancer metastatic
     Dosage: 60 MG, BID (MORNING AND THE EVENING MEAL, ON DAY 1 THROUGH DAY 5, FOLLOWED BY A RECOVERY PERIOD)
     Route: 048
     Dates: start: 20210628
  4. MOVANTIK [Suspect]
     Active Substance: NALOXEGOL OXALATE
     Dosage: UNK
  5. VALIUM [Suspect]
     Active Substance: DIAZEPAM
  6. CIPRO [Suspect]
     Active Substance: CIPROFLOXACIN HYDROCHLORIDE
     Dosage: UNK

REACTIONS (5)
  - Colorectal cancer metastatic [Not Recovered/Not Resolved]
  - Hospitalisation [Unknown]
  - Pyrexia [Not Recovered/Not Resolved]
  - Abdominal pain lower [Not Recovered/Not Resolved]
  - Drug interaction [None]
